FAERS Safety Report 8162637-6 (Version None)
Quarter: 2012Q1

REPORT INFORMATION
  Report Type: 
  Country: None (occurrence: None)
  Receive Date: 20120224
  Receipt Date: 20120215
  Transmission Date: 20120608
  Serious: Yes (Other)
  Sender: FDA-Public Use
  Company Number: FR-SANOFI-AVENTIS-2012SA009950

PATIENT
  Age: 57 Year
  Sex: Male

DRUGS (7)
  1. PLAVIX [Suspect]
     Route: 065
     Dates: start: 20110101
  2. PLAVIX [Suspect]
     Route: 048
     Dates: start: 20120122, end: 20120201
  3. SUBUTEX [Concomitant]
     Dosage: STRENGTH: 8 MG
     Route: 048
  4. ROHYPNOL [Concomitant]
     Route: 048
  5. PERINDOPRIL [Suspect]
     Route: 048
     Dates: start: 20120122, end: 20120201
  6. NEXIUM [Concomitant]
     Route: 048
  7. PERINDOPRIL [Suspect]
     Route: 065
     Dates: start: 20110101

REACTIONS (1)
  - SKIN ULCER [None]
